FAERS Safety Report 8910691 (Version 1)
Quarter: 2012Q4

REPORT INFORMATION
  Report Type: Spontaneous
  Country: JP (occurrence: None)
  Receive Date: 20121107
  Receipt Date: 20121107
  Transmission Date: 20130627
  Serious: Yes (Other)
  Sender: FDA-Public Use
  Company Number: FK201203284

PATIENT
  Age: 69 Year
  Sex: Male

DRUGS (2)
  1. CISPLATIN [Suspect]
     Indication: GASTRIC CANCER
  2. GIMERACIL, OTERACIL, TEGAFUR [Suspect]
     Indication: GASTRIC CANCER

REACTIONS (5)
  - Tumour lysis syndrome [None]
  - Metastases to lung [None]
  - Metastases to liver [None]
  - Depressed level of consciousness [None]
  - Renal failure acute [None]
